FAERS Safety Report 15099983 (Version 3)
Quarter: 2018Q4

REPORT INFORMATION
  Report Type: Report from Study
  Country: US (occurrence: US)
  Receive Date: 20180703
  Receipt Date: 20181225
  Transmission Date: 20190204
  Serious: Yes (Death, Hospitalization)
  Sender: FDA-Public Use
  Company Number: PHEH2018US027209

PATIENT
  Age: 71 Year
  Sex: Female

DRUGS (1)
  1. MYFORTIC [Suspect]
     Active Substance: MYCOPHENOLATE SODIUM
     Indication: TRANSPLANT
     Dosage: 360 MG, BID
     Route: 048

REACTIONS (7)
  - Thinking abnormal [Unknown]
  - Procedural pain [Unknown]
  - Death [Fatal]
  - Pericardial effusion [Unknown]
  - Pulmonary oedema [Unknown]
  - Hydronephrosis [Unknown]
  - Cardiac failure congestive [Unknown]

NARRATIVE: CASE EVENT DATE: 20180618
